FAERS Safety Report 13124879 (Version 1)
Quarter: 2017Q1

REPORT INFORMATION
  Report Type: Not Available
  Country: CN (occurrence: CN)
  Receive Date: 20170118
  Receipt Date: 20170118
  Transmission Date: 20170428
  Serious: Yes (Other)
  Sender: FDA-Public Use
  Company Number: CN-NAPPMUNDI-GBR-2017-0042845

PATIENT
  Age: 54 Year
  Sex: Male
  Weight: 59 kg

DRUGS (2)
  1. MS CONTIN [Suspect]
     Active Substance: MORPHINE SULFATE
     Dosage: UNK
     Route: 048
  2. MS CONTIN [Suspect]
     Active Substance: MORPHINE SULFATE
     Indication: ANALGESIC THERAPY
     Dosage: 70 MG, BID
     Route: 048
     Dates: start: 20160907, end: 20160907

REACTIONS (7)
  - Somnolence [Recovering/Resolving]
  - Hallucination [Recovering/Resolving]
  - Nausea [Recovering/Resolving]
  - Vomiting [Recovering/Resolving]
  - Drug tolerance [Unknown]
  - Intentional product use issue [Unknown]
  - Delirium [Recovering/Resolving]

NARRATIVE: CASE EVENT DATE: 20160907
